FAERS Safety Report 5569753-3 (Version None)
Quarter: 2007Q4

REPORT INFORMATION
  Report Type: 
  Country: None (occurrence: None)
  Receive Date: 20071219
  Receipt Date: 20071213
  Transmission Date: 20080405
  Serious: Yes (Life-Threatening)
  Sender: FDA-Public Use
  Company Number: S07-USA-05949-01

PATIENT
  Age: 38 Year
  Sex: Female

DRUGS (3)
  1. THYROID TAB [Suspect]
     Indication: AUTOIMMUNE THYROIDITIS
     Dates: start: 20050201, end: 20050201
  2. NEXIUM [Concomitant]
  3. ALLEGRA (FEXOFENADINE HYDROCHLORIDE) [Concomitant]

REACTIONS (5)
  - ANAPHYLACTIC REACTION [None]
  - FOOD ALLERGY [None]
  - PULMONARY OEDEMA [None]
  - THROAT TIGHTNESS [None]
  - URTICARIA [None]
